FAERS Safety Report 17348870 (Version 3)
Quarter: 2022Q3

REPORT INFORMATION
  Report Type: Report from Study
  Country: IT (occurrence: None)
  Receive Date: 20200130
  Receipt Date: 20220902
  Transmission Date: 20221027
  Serious: Yes (Disabling)
  Sender: FDA-Public Use
  Company Number: IT-ROCHE-2532838

PATIENT
  Age: 42 Year
  Sex: Male

DRUGS (7)
  1. RITUXIMAB [Suspect]
     Active Substance: RITUXIMAB
     Indication: Extranodal marginal zone B-cell lymphoma (MALT type)
     Dosage: ON 20/AUG/2018, RECEIVED THE MOST RECENT DOSE OF RITUXIMAB PRIOR TO SAE
     Route: 042
     Dates: start: 20160129
  2. RITUXIMAB [Suspect]
     Active Substance: RITUXIMAB
     Indication: Extranodal marginal zone B-cell lymphoma (MALT type)
     Dosage: ON 20/AUG/2018, RECEIVED THE MOST RECENT DOSE OF RITUXIMAB SC PRIOR TO SAE.
     Route: 058
     Dates: start: 20160129
  3. CHLORAMBUCIL [Suspect]
     Active Substance: CHLORAMBUCIL
     Indication: Extranodal marginal zone B-cell lymphoma (MALT type)
     Dosage: 25/JUL/2016, MOST RECENT DOSE OF CHLORAMBUCIL PRIOR TO SAE
     Route: 048
     Dates: start: 20160129
  4. QUETIAPINE [Concomitant]
     Active Substance: QUETIAPINE
     Dosage: 50 MG/100 MG
     Route: 048
  5. TRIAZOLAM [Concomitant]
     Active Substance: TRIAZOLAM
     Route: 048
  6. CITALOPRAM [Concomitant]
     Active Substance: CITALOPRAM HYDROBROMIDE
     Route: 048
  7. CHOLECALCIFEROL [Concomitant]
     Active Substance: CHOLECALCIFEROL
     Route: 048

REACTIONS (2)
  - Leukoencephalopathy [Not Recovered/Not Resolved]
  - Encephalopathy [Not Recovered/Not Resolved]

NARRATIVE: CASE EVENT DATE: 20190910
